FAERS Safety Report 9555113 (Version 1)
Quarter: 2013Q3

REPORT INFORMATION
  Report Type: Spontaneous
  Country: US (occurrence: None)
  Receive Date: 20130815
  Receipt Date: 20130815
  Transmission Date: 20140515
  Serious: Yes (Other)
  Sender: FDA-Public Use
  Company Number: ADR-2012-02267

PATIENT
  Age: 71 Year
  Sex: Male

DRUGS (4)
  1. BACLOFEN [Suspect]
     Indication: PAIN
  2. DILAUDID (HYDROMORPHONE) [Concomitant]
  3. FENTANYL [Concomitant]
  4. BUPIVACAINE [Concomitant]

REACTIONS (3)
  - Drug withdrawal syndrome [None]
  - Nausea [None]
  - Tremor [None]
